FAERS Safety Report 23213762 (Version 2)
Quarter: 2024Q1

REPORT INFORMATION
  Report Type: Spontaneous
  Country: JP (occurrence: JP)
  Receive Date: 20231121
  Receipt Date: 20240105
  Transmission Date: 20240410
  Serious: Yes (Other)
  Sender: FDA-Public Use
  Company Number: JP-TAKEDA-2023TJP015013

PATIENT
  Age: 40 Year
  Sex: Female

DRUGS (1)
  1. LEUPLIN [Suspect]
     Active Substance: LEUPROLIDE ACETATE
     Indication: Endometriosis
     Dosage: LEUPLIN FOR INJECTION KIT 3.75 MG?3.75 MILLIGRAM, Q4WEEKS
     Route: 030

REACTIONS (1)
  - Cerebral infarction [Unknown]
